FAERS Safety Report 18598785 (Version 2)
Quarter: 2020Q4

REPORT INFORMATION
  Report Type: Report from Study
  Country: US (occurrence: US)
  Receive Date: 20201210
  Receipt Date: 20201214
  Transmission Date: 20210114
  Serious: Yes (Hospitalization)
  Sender: FDA-Public Use
  Company Number: US-DOVA PHARMACEUTICALS INC.-DOV-000757

PATIENT
  Sex: Male

DRUGS (1)
  1. DOPTELET [Suspect]
     Active Substance: AVATROMBOPAG MALEATE
     Indication: GRAFT VERSUS HOST DISEASE
     Dosage: 20 MILLIGRAM, QD
     Route: 048
     Dates: start: 20201125

REACTIONS (2)
  - Product use in unapproved indication [Unknown]
  - Respiratory disorder [Unknown]
